FAERS Safety Report 12422322 (Version 2)
Quarter: 2017Q2

REPORT INFORMATION
  Report Type: Report from Study
  Country: MX (occurrence: MX)
  Receive Date: 20160601
  Receipt Date: 20170608
  Transmission Date: 20170830
  Serious: Yes (Other)
  Sender: FDA-Public Use
  Company Number: PHHY2016MX073498

PATIENT
  Sex: Male

DRUGS (4)
  1. STALEVO [Suspect]
     Active Substance: CARBIDOPA\ENTACAPONE\LEVODOPA
     Dosage: 1 DF, (EACH TABLET CONTAINS 75 MG OF LEVODOPA, 18.75 MG OF CARBIDOPA AND 200 MG OF ENTACAPONE)
     Route: 065
  2. STALEVO [Suspect]
     Active Substance: CARBIDOPA\ENTACAPONE\LEVODOPA
     Dosage: 0.5 DF, (EACH TABLET CONTAINS 75 MG OF LEVODOPA, 18.75 MG OF CARBIDOPA AND 200 MG OF ENTACAPONE), QD
     Route: 065
  3. ALPRAZOLAM. [Concomitant]
     Active Substance: ALPRAZOLAM
     Indication: PRODUCT USED FOR UNKNOWN INDICATION
     Route: 065
  4. STALEVO [Suspect]
     Active Substance: CARBIDOPA\ENTACAPONE\LEVODOPA
     Indication: CEREBRAL ATROPHY
     Dosage: 3 DF, (EACH TABLET CONTAINS 75 MG OF LEVODOPA, 18.75 MG OF CARBIDOPA AND 200 MG OF ENTACAPONE)
     Route: 065

REACTIONS (9)
  - Product use in unapproved indication [Not Recovered/Not Resolved]
  - Seizure [Unknown]
  - Fall [Unknown]
  - Insomnia [Unknown]
  - Prescribed underdose [Not Recovered/Not Resolved]
  - Seizure [Recovered/Resolved]
  - Wrong technique in product usage process [Not Recovered/Not Resolved]
  - Hallucination [Unknown]
  - Cerebral disorder [Unknown]
